FAERS Safety Report 7725457-X (Version None)
Quarter: 2011Q3

REPORT INFORMATION
  Report Type: 
  Country: None (occurrence: None)
  Receive Date: 20110902
  Receipt Date: 20110823
  Transmission Date: 20111222
  Serious: Yes (Hospitalization, Other)
  Sender: FDA-Public Use
  Company Number: US-JNJFOC-20110812679

PATIENT
  Age: 32 Year
  Sex: Male

DRUGS (6)
  1. RISPERIDONE [Suspect]
     Route: 048
  2. PREDNISONE [Concomitant]
     Indication: INFLAMMATION
     Route: 065
  3. RISPERIDONE [Suspect]
     Indication: SCHIZOPHRENIA
     Dosage: AT BED TIME
     Route: 048
  4. LANTUS [Concomitant]
     Indication: DIABETES MELLITUS
     Route: 065
  5. GLYBURIDE [Concomitant]
     Indication: DIABETES MELLITUS
     Route: 065
  6. LEXAPRO [Concomitant]
     Indication: DEPRESSION
     Route: 065

REACTIONS (2)
  - PSYCHIATRIC SYMPTOM [None]
  - DIALYSIS [None]
